FAERS Safety Report 17629111 (Version 1)
Quarter: 2020Q2

REPORT INFORMATION
  Report Type: Spontaneous
  Country: US (occurrence: US)
  Receive Date: 20200406
  Receipt Date: 20200406
  Transmission Date: 20200713
  Serious: No
  Sender: FDA-Public Use
  Company Number: US-ALLERGAN-1945485US

PATIENT
  Sex: Male

DRUGS (1)
  1. DELZICOL [Suspect]
     Active Substance: MESALAMINE
     Indication: PRODUCT USED FOR UNKNOWN INDICATION
     Dosage: UNK, BID
     Route: 048
     Dates: end: 20191101

REACTIONS (3)
  - Abdominal discomfort [Unknown]
  - Product dose omission [Unknown]
  - Product colour issue [Unknown]

NARRATIVE: CASE EVENT DATE: 20191101
